FAERS Safety Report 5815611-6 (Version None)
Quarter: 2008Q3

REPORT INFORMATION
  Report Type: 
  Country: None (occurrence: None)
  Receive Date: 20080716
  Receipt Date: 20080701
  Transmission Date: 20090109
  Serious: Yes (Other)
  Sender: FDA-Public Use
  Company Number: 231967J08USA

PATIENT
  Age: 39 Year
  Sex: Male
  Weight: 79.3795 kg

DRUGS (2)
  1. REBIF [Suspect]
     Indication: MULTIPLE SCLEROSIS
     Dosage: 44  MCG, 3 IN 1 WEEKS, SUBCUTANEOUS
     Route: 058
     Dates: start: 20060807, end: 20080520
  2. ALEVE (CAPLET) [Concomitant]

REACTIONS (12)
  - ACCIDENTAL NEEDLE STICK [None]
  - CORNEAL ABRASION [None]
  - DRY EYE [None]
  - EYE PAIN [None]
  - EYE PRURITUS [None]
  - FATIGUE [None]
  - INFLUENZA LIKE ILLNESS [None]
  - NEUROPATHY PERIPHERAL [None]
  - RETINAL ARTERY OCCLUSION [None]
  - RETINAL INFARCTION [None]
  - RETINOPATHY [None]
  - UNEVALUABLE EVENT [None]
